FAERS Safety Report 9101937 (Version 2)
Quarter: 2013Q1

REPORT INFORMATION
  Report Type: Spontaneous
  Country: JP (occurrence: JP)
  Receive Date: 20130218
  Receipt Date: 20130225
  Transmission Date: 20140127
  Serious: Yes (Hospitalization)
  Sender: FDA-Public Use
  Company Number: JP-NOVOPROD-370820

PATIENT
  Age: 56 Year
  Sex: Female

DRUGS (1)
  1. VICTOZA HIKACHU INJECTION [Suspect]
     Indication: DIABETES MELLITUS
     Dosage: UNK
     Route: 058
     Dates: start: 201109

REACTIONS (2)
  - Diabetic ketoacidosis [Recovered/Resolved]
  - Vomiting [Unknown]
